FAERS Safety Report 18912965 (Version 1)
Quarter: 2021Q1

REPORT INFORMATION
  Report Type: Report from Study
  Country: US (occurrence: US)
  Receive Date: 20210218
  Receipt Date: 20210218
  Transmission Date: 20210420
  Serious: Yes (Life-Threatening, Hospitalization)
  Sender: FDA-Public Use
  Company Number: US-MYLANLABS-2021M1010048

PATIENT
  Age: 76 Year
  Sex: Male
  Weight: 70.7 kg

DRUGS (5)
  1. DESMOPRESSIN [Suspect]
     Active Substance: DESMOPRESSIN
     Indication: SUBDURAL HAEMATOMA
     Dosage: 0.29 MICROGRAM/KILOGRAM
     Route: 065
  2. ASPIRIN                            /00002701/ [Suspect]
     Active Substance: ASPIRIN
     Indication: ANTIPLATELET THERAPY
     Dosage: 81 MILLIGRAM
     Route: 065
  3. PROTHROMBIN COMPLEX CONCENTRATE NOS [Suspect]
     Active Substance: COAGULATION FACTOR IX HUMAN\COAGULATION FACTOR VII HUMAN\COAGULATION FACTOR X HUMAN\PROTHROMBIN
     Indication: SUBDURAL HAEMATOMA
     Dosage: 48.5 UNITS/KG
     Route: 065
  4. RIVAROXABAN [Suspect]
     Active Substance: RIVAROXABAN
     Indication: ANTICOAGULANT THERAPY
     Dosage: UNK
     Route: 048
  5. CLOPIDOGREL [Suspect]
     Active Substance: CLOPIDOGREL BISULFATE
     Indication: ANTIPLATELET THERAPY
     Dosage: UNK
     Route: 065

REACTIONS (2)
  - Subdural haematoma [Unknown]
  - Off label use [Unknown]
